FAERS Safety Report 7260521-3 (Version None)
Quarter: 2011Q1

REPORT INFORMATION
  Report Type: 
  Country: None (occurrence: None)
  Receive Date: 20110130
  Receipt Date: 20101218
  Transmission Date: 20110831
  Serious: No
  Sender: FDA-Public Use
  Company Number: US-ABBOTT-10P-163-0692709-00

PATIENT
  Age: 39 Year
  Sex: Female

DRUGS (11)
  1. CHOLESTYRAMINE [Concomitant]
     Indication: CROHN'S DISEASE
     Dosage: POWDER
  2. OSTRACAL [Concomitant]
     Indication: PRODUCT USED FOR UNKNOWN INDICATION
  3. NORCO [Concomitant]
     Indication: BACK PAIN
  4. HUMIRA [Suspect]
     Indication: CROHN'S DISEASE
  5. NORCO [Concomitant]
     Indication: NECK PAIN
  6. LOMOTIL [Concomitant]
     Indication: CROHN'S DISEASE
  7. THIORIDAZINE HCL [Concomitant]
     Indication: PRODUCT USED FOR UNKNOWN INDICATION
     Dosage: 4 AT NIGHT
  8. VIT D [Concomitant]
     Indication: PRODUCT USED FOR UNKNOWN INDICATION
  9. ALPRAZOLAM [Concomitant]
     Indication: PRODUCT USED FOR UNKNOWN INDICATION
  10. MULTI VIT [Concomitant]
     Indication: PRODUCT USED FOR UNKNOWN INDICATION
  11. DEPAKOTE [Concomitant]
     Indication: PRODUCT USED FOR UNKNOWN INDICATION

REACTIONS (2)
  - LOWER RESPIRATORY TRACT INFECTION [None]
  - FATIGUE [None]
